FAERS Safety Report 12760475 (Version 7)
Quarter: 2018Q1

REPORT INFORMATION
  Report Type: Report from Study
  Country: US (occurrence: US)
  Receive Date: 20160919
  Receipt Date: 20180123
  Transmission Date: 20180508
  Serious: Yes (Death, Hospitalization, Other)
  Sender: FDA-Public Use
  Company Number: US-ACTELION-A-US2016-140403

PATIENT
  Age: 62 Year
  Sex: Male
  Weight: 53.97 kg

DRUGS (5)
  1. LETAIRIS [Concomitant]
     Active Substance: AMBRISENTAN
  2. VELETRI [Suspect]
     Active Substance: EPOPROSTENOL
     Dosage: 10 NG/KG, PER MIN
     Route: 042
     Dates: start: 20160726
  3. ADCIRCA [Concomitant]
     Active Substance: TADALAFIL
  4. VELETRI [Suspect]
     Active Substance: EPOPROSTENOL
     Indication: PULMONARY HYPERTENSION
     Dosage: 26 NG/KG, PER MIN
     Route: 042
  5. VELETRI [Suspect]
     Active Substance: EPOPROSTENOL
     Dosage: 34 NG/KG, PER MIN
     Route: 042

REACTIONS (16)
  - Anaemia [Unknown]
  - Death [Fatal]
  - Flushing [Unknown]
  - Visual impairment [Unknown]
  - Dyspnoea exertional [Unknown]
  - Nausea [Unknown]
  - Therapy non-responder [Unknown]
  - Weight decreased [Unknown]
  - Headache [Unknown]
  - Arthralgia [Unknown]
  - Transfusion [Unknown]
  - Eye infection [Unknown]
  - Pain in jaw [Unknown]
  - Asthenia [Unknown]
  - Back pain [Unknown]
  - Mobility decreased [Unknown]

NARRATIVE: CASE EVENT DATE: 20180109
